FAERS Safety Report 8531357 (Version 2)
Quarter: 2012Q4

REPORT INFORMATION
  Report Type: 
  Country: US (occurrence: US)
  Receive Date: 20120426
  Receipt Date: 20120917
  Transmission Date: 20130627
  Serious: Yes (Hospitalization)
  Sender: FDA-Public Use
  Company Number: US-BAYER-2012-039958

PATIENT
  Age: 24 Year
  Sex: Female

DRUGS (7)
  1. YAZ [Suspect]
     Dosage: UNK
     Dates: start: 20090901, end: 20100629
  2. VICODIN [Concomitant]
     Dosage: 5-500 mg; PO
  3. IMITREX [Concomitant]
     Dosage: 100 mg,PO
  4. LORTAB [Concomitant]
     Dosage: 5/500; PRN
  5. CYCLOBENZAPRINE [Concomitant]
     Dosage: 10 mg, UNK
     Dates: start: 20100315
  6. DICLOFENAC [Concomitant]
     Dosage: 75 mg, UNK
     Dates: start: 20100315
  7. ORPHENADRINE ER [Concomitant]
     Dosage: 100 mg, UNK
     Dates: start: 20100426

REACTIONS (4)
  - Gallbladder non-functioning [None]
  - Cholecystitis [None]
  - Injury [None]
  - Pain [None]
